FAERS Safety Report 9372926 (Version 1)
Quarter: 2013Q2

REPORT INFORMATION
  Report Type: Spontaneous
  Country: ZA (occurrence: ZA)
  Receive Date: 20130627
  Receipt Date: 20130627
  Transmission Date: 20140414
  Serious: Yes (Other)
  Sender: FDA-Public Use
  Company Number: ZA-PFIZER INC-2013188394

PATIENT
  Age: 38 Year
  Sex: Male
  Weight: 70 kg

DRUGS (5)
  1. CHAMPIX [Suspect]
     Indication: SMOKING CESSATION THERAPY
     Dosage: AS PER REGIME
     Route: 048
     Dates: start: 20130524, end: 20130529
  2. WELLBUTRIN XL [Concomitant]
     Indication: MAJOR DEPRESSION
     Dosage: 300 (UNITS UNKNOWN), DAILY
     Route: 048
     Dates: start: 2006
  3. NEVIRAPINE [Concomitant]
     Indication: RETROVIRAL INFECTION
     Dosage: 200 (UNITS UNKNOWN), 2X/DAY (BD)
     Route: 048
     Dates: start: 2006
  4. TRUVADA [Concomitant]
     Indication: RETROVIRAL INFECTION
     Dosage: 1 TABLET DAILY
     Route: 048
     Dates: start: 2006
  5. PREXUM PLUS [Concomitant]
     Indication: HYPERTENSION
     Dosage: DAILY
     Route: 048
     Dates: start: 1995

REACTIONS (4)
  - Feeling abnormal [Recovered/Resolved]
  - Memory impairment [Recovered/Resolved]
  - Fatigue [Recovered/Resolved]
  - Somnolence [Unknown]
